FAERS Safety Report 23568996 (Version 1)
Quarter: 2024Q1

REPORT INFORMATION
  Report Type: Report from Study
  Country: US (occurrence: US)
  Receive Date: 20240227
  Receipt Date: 20240227
  Transmission Date: 20240409
  Serious: No
  Sender: FDA-Public Use
  Company Number: US-ORG100014127-2024000010

PATIENT
  Age: 85 Year
  Sex: Female

DRUGS (12)
  1. METOPIRONE [Suspect]
     Active Substance: METYRAPONE
     Indication: Cushing^s syndrome
     Dosage: 250 MG: TAKE 1 CAPSULE (250 MG TOTAL) BY MOUTH THREE TIMES DAILY
     Dates: start: 20230906
  2. ALLOPURINOL TAB 100MG [Concomitant]
     Indication: Product used for unknown indication
  3. ARICEPT TAB 10MG [Concomitant]
     Indication: Product used for unknown indication
  4. ASPIRIN LOW TAB 81MG EC [Concomitant]
     Indication: Product used for unknown indication
  5. CYMBALTA CAP 30MG [Concomitant]
     Indication: Product used for unknown indication
  6. ESTRADIOL TAB 1MG [Concomitant]
     Indication: Product used for unknown indication
  7. GABAPENTIN [Concomitant]
     Active Substance: GABAPENTIN
     Indication: Product used for unknown indication
  8. GEMTESA TAB 75MG [Concomitant]
     Indication: Product used for unknown indication
  9. KEPPRA TAB 500MG [Concomitant]
     Indication: Product used for unknown indication
  10. LASIX TAB 40MG [Concomitant]
     Indication: Product used for unknown indication
  11. LIPITOR TAB 20MG [Concomitant]
     Indication: Product used for unknown indication
  12. LOPRESSOR TAB 50MG [Concomitant]
     Indication: Product used for unknown indication

REACTIONS (1)
  - Off label use [Unknown]

NARRATIVE: CASE EVENT DATE: 20230906
